FAERS Safety Report 17216201 (Version 1)
Quarter: 2019Q4

REPORT INFORMATION
  Report Type: Spontaneous
  Country: JP (occurrence: JP)
  Receive Date: 20191230
  Receipt Date: 20191230
  Transmission Date: 20200122
  Serious: Yes (Death, Hospitalization, Other)
  Sender: FDA-Public Use
  Company Number: JP-BAYER-2019-177838

PATIENT
  Age: 81 Year
  Sex: Male

DRUGS (3)
  1. PROMAC D [Concomitant]
     Active Substance: POLAPREZINC
  2. STIVARGA [Suspect]
     Active Substance: REGORAFENIB
     Indication: METASTASES TO LIVER
  3. STIVARGA [Suspect]
     Active Substance: REGORAFENIB
     Indication: COLON CANCER
     Dosage: DAILY DOSE 160 MG
     Route: 048
     Dates: start: 20190502, end: 20190506

REACTIONS (6)
  - Cardiomyopathy [Recovering/Resolving]
  - Atrial fibrillation [None]
  - Cardiac failure [Recovering/Resolving]
  - Pneumonia [Recovering/Resolving]
  - Mitral valve incompetence [None]
  - Ventricular hypokinesia [Recovering/Resolving]

NARRATIVE: CASE EVENT DATE: 2019
